FAERS Safety Report 18639982 (Version 3)
Quarter: 2021Q4

REPORT INFORMATION
  Report Type: Spontaneous
  Country: US (occurrence: US)
  Receive Date: 20201220
  Receipt Date: 20211217
  Transmission Date: 20220303
  Serious: Yes (Other)
  Sender: FDA-Public Use
  Company Number: US-PACIRA-202000299

PATIENT
  Sex: Female
  Weight: 48 kg

DRUGS (3)
  1. EXPAREL [Suspect]
     Active Substance: BUPIVACAINE
     Dosage: 20 ML, ADMIXED WITH 30 ML OF 0.5% BUPIVACAINE HCL AND NORMAL SALINE
     Route: 065
  2. MARCAINE [Suspect]
     Active Substance: BUPIVACAINE HYDROCHLORIDE
     Dosage: 30 ML ADMIXED WITH 20 ML OF EXPAREL AND NORMAL SALINE
     Route: 065
  3. SALINE [Concomitant]
     Active Substance: SODIUM CHLORIDE
     Dosage: UNKNOWN VOLUME ADMIXED WITH 20 ML EXPAREL AND 30 ML BUPIVACAINE HCL 0.5%
     Route: 065

REACTIONS (1)
  - Local anaesthetic systemic toxicity [Recovered/Resolved]
